FAERS Safety Report 7023869-3 (Version None)
Quarter: 2010Q3

REPORT INFORMATION
  Report Type: 
  Country: None (occurrence: None)
  Receive Date: 20100916
  Receipt Date: 20100611
  Transmission Date: 20110219
  Serious: Yes (Hospitalization)
  Sender: FDA-Public Use
  Company Number: DKLU1062852

PATIENT

DRUGS (2)
  1. SABRIL [Suspect]
     Indication: PRODUCT USED FOR UNKNOWN INDICATION
     Dosage: FULL DOSE ; HALF DOSAGE
     Dates: end: 20100610
  2. SABRIL [Suspect]
     Indication: PRODUCT USED FOR UNKNOWN INDICATION
     Dosage: FULL DOSE ; HALF DOSAGE
     Dates: start: 20100608

REACTIONS (2)
  - RESPIRATORY DEPRESSION [None]
  - SEDATION [None]
